FAERS Safety Report 5987026-1 (Version None)
Quarter: 2008Q4

REPORT INFORMATION
  Report Type: 
  Country: None (occurrence: None)
  Receive Date: 20081209
  Receipt Date: 20081203
  Transmission Date: 20090506
  Serious: Yes (Other)
  Sender: FDA-Public Use
  Company Number: B0548869A

PATIENT
  Sex: Female

DRUGS (3)
  1. KIVEXA [Suspect]
     Indication: DRUG USE FOR UNKNOWN INDICATION
     Route: 048
     Dates: start: 20080910, end: 20080901
  2. KALETRA [Concomitant]
  3. SEPTRIN [Concomitant]

REACTIONS (4)
  - DRUG HYPERSENSITIVITY [None]
  - LARYNGOSPASM [None]
  - RASH GENERALISED [None]
  - RESPIRATORY DISTRESS [None]
